FAERS Safety Report 14431645 (Version 1)
Quarter: 2018Q1

REPORT INFORMATION
  Report Type: Spontaneous
  Country: US (occurrence: US)
  Receive Date: 20180124
  Receipt Date: 20180124
  Transmission Date: 20180509
  Serious: Yes (Death, Other)
  Sender: FDA-Public Use
  Company Number: US-ROCHE-2017970

PATIENT
  Age: 68 Year
  Sex: Male

DRUGS (2)
  1. TISAGENLECLEUCEL. [Suspect]
     Active Substance: TISAGENLECLEUCEL
     Indication: DIFFUSE LARGE B-CELL LYMPHOMA
     Route: 041
  2. ACTEMRA [Suspect]
     Active Substance: TOCILIZUMAB
     Indication: CYTOKINE RELEASE SYNDROME
     Route: 042
     Dates: start: 20161002

REACTIONS (7)
  - Acute kidney injury [Unknown]
  - Diffuse large B-cell lymphoma [Fatal]
  - Disseminated intravascular coagulation [Unknown]
  - Status epilepticus [Unknown]
  - Thrombocytopenia [Unknown]
  - Candida infection [Unknown]
  - Cerebral infarction [Unknown]
